FAERS Safety Report 8035549-6 (Version None)
Quarter: 2012Q1

REPORT INFORMATION
  Report Type: 
  Country: None (occurrence: None)
  Receive Date: 20120110
  Receipt Date: 20120110
  Transmission Date: 20120608
  Serious: No
  Sender: FDA-Public Use
  Company Number: None

PATIENT
  Age: 86 Year
  Sex: Male
  Weight: 68 kg

DRUGS (6)
  1. METOCLOPRAMIDE [Concomitant]
  2. PROTONIX [Suspect]
     Indication: GASTROINTESTINAL DISORDER POSTOPERATIVE
     Dosage: 40 MG Q DAY IV
     Route: 042
     Dates: start: 20111004, end: 20111006
  3. PROTONIX [Suspect]
     Indication: PROPHYLAXIS
     Dosage: 40 MG Q DAY IV
     Route: 042
     Dates: start: 20111004, end: 20111006
  4. ANCEF [Suspect]
     Indication: POSTOPERATIVE CARE
     Dosage: 1GM Q8 IV
     Route: 042
     Dates: start: 20111004, end: 20111006
  5. ANCEF [Suspect]
     Indication: PROPHYLAXIS
     Dosage: 1GM Q8 IV
     Route: 042
     Dates: start: 20111004, end: 20111006
  6. MERCAPURINE [Concomitant]

REACTIONS (2)
  - PRURITUS [None]
  - RASH [None]
